FAERS Safety Report 9000514 (Version 1)
Quarter: 2012Q4

REPORT INFORMATION
  Report Type: Spontaneous
  Country: US (occurrence: None)
  Receive Date: 20121221
  Receipt Date: 20121221
  Transmission Date: 20130627
  Serious: Yes (Other)
  Sender: FDA-Public Use
  Company Number: JPI-P-026857

PATIENT
  Age: 19 Year
  Sex: Female
  Weight: 53.52 kg

DRUGS (8)
  1. XYREM (500 MILLIGRAM/MILLILITERS, SOLUTION) (SODIUM OXYBATE) [Suspect]
     Indication: CATAPLEXY
     Route: 048
     Dates: start: 20121107
  2. XYREM (500 MILLIGRAM/MILLILITERS, SOLUTION) (SODIUM OXYBATE) [Suspect]
     Indication: CATAPLEXY
  3. MILNACIPRAN HYDROCHLORIDE [Suspect]
     Indication: ANXIETY
     Dates: start: 201211, end: 20121203
  4. BUSPIRONE [Suspect]
     Indication: ANXIETY
     Dates: start: 20121126, end: 20121203
  5. UNSPECIFIED INGREDIENT [Suspect]
     Indication: ANXIETY
     Dates: start: 201211, end: 20121203
  6. DULOXETINE HYDROCHLORIDE [Suspect]
     Indication: ANXIETY
     Dates: end: 201211
  7. ARIPIPRAZOLE [Suspect]
     Indication: ANXIETY
     Dates: end: 201211
  8. BIRTH CONTROL PILL [Concomitant]

REACTIONS (5)
  - Anxiety [None]
  - Nausea [None]
  - Vomiting [None]
  - Weight decreased [None]
  - Decreased appetite [None]
